FAERS Safety Report 25940348 (Version 1)
Quarter: 2025Q4

REPORT INFORMATION
  Report Type: Spontaneous
  Country: US (occurrence: US)
  Receive Date: 20251020
  Receipt Date: 20251020
  Transmission Date: 20260118
  Serious: Yes (Other)
  Sender: RADIUS PHARM
  Company Number: US-RADIUS HEALTH INC.-US-RADIUS-25054793

PATIENT
  Sex: Female

DRUGS (1)
  1. TYMLOS [Suspect]
     Active Substance: ABALOPARATIDE
     Indication: Senile osteoporosis
     Dosage: 80 MICROGRAM, QD
     Route: 058
     Dates: start: 20210514

REACTIONS (6)
  - Hip fracture [Unknown]
  - Shoulder fracture [Unknown]
  - Lower limb fracture [Recovering/Resolving]
  - Upper limb fracture [Recovering/Resolving]
  - Fall [Recovering/Resolving]
  - Product dose omission in error [Unknown]
